FAERS Safety Report 5454091-X (Version None)
Quarter: 2007Q3

REPORT INFORMATION
  Report Type: 
  Country: None (occurrence: None)
  Receive Date: 20070917
  Receipt Date: 20070531
  Transmission Date: 20080115
  Serious: No
  Sender: FDA-Public Use
  Company Number: US-ASTRAZENECA-2006UW07925

PATIENT
  Age: 475 Month
  Sex: Male
  Weight: 259.5 kg

DRUGS (1)
  1. SEROQUEL [Suspect]
     Indication: INSOMNIA
     Dosage: 100 MG - 200 MG
     Route: 048
     Dates: start: 20030801

REACTIONS (4)
  - DIABETES MELLITUS [None]
  - FIBROMYALGIA [None]
  - HYPERTENSION [None]
  - WEIGHT INCREASED [None]
